FAERS Safety Report 4323361-0 (Version None)
Quarter: 2004Q1

REPORT INFORMATION
  Report Type: 
  Country: None (occurrence: None)
  Receive Date: 20040322
  Receipt Date: 20040310
  Transmission Date: 20041129
  Serious: Yes (Hospitalization)
  Sender: FDA-Public Use
  Company Number: 2004-02-0387

PATIENT
  Sex: Male

DRUGS (2)
  1. DIPROSPAN (BETAMETHASONE SODIUM PHOSPHATE/DIPROPIONA INJECTABLE SUSPEN [Suspect]
     Indication: PERIARTHRITIS
     Dosage: 1 ML PERIARTICULAR
     Route: 052
     Dates: start: 20031023, end: 20031023
  2. LIDOCAINE [Suspect]
     Indication: PERIARTHRITIS
     Dosage: PERIARTICULAR
     Route: 052
     Dates: start: 20031023, end: 20031023

REACTIONS (7)
  - CHILLS [None]
  - ERYTHEMA [None]
  - EYE REDNESS [None]
  - FAECAL VOLUME DECREASED [None]
  - FEELING ABNORMAL [None]
  - LOOSE STOOLS [None]
  - PALLOR [None]
